FAERS Safety Report 5120772-0 (Version None)
Quarter: 2006Q4

REPORT INFORMATION
  Report Type: 
  Country: None (occurrence: None)
  Receive Date: 20061003
  Receipt Date: 20061003
  Transmission Date: 20070319
  Serious: Yes (Other)
  Sender: FDA-Public Use
  Company Number: None

PATIENT
  Age: 36 Year
  Sex: Male
  Weight: 98.2 kg

DRUGS (4)
  1. VANCOMYCIN [Suspect]
     Indication: WOUND INFECTION STAPHYLOCOCCAL
     Dosage: 1 GRAM  Q12H IV DRIP
     Route: 042
     Dates: start: 20060921, end: 20061002
  2. VANCOMYCIN [Suspect]
  3. RIFAMPIN [Concomitant]
  4. PERCOCET [Concomitant]

REACTIONS (1)
  - TINNITUS [None]
